FAERS Safety Report 24861980 (Version 4)
Quarter: 2025Q2

REPORT INFORMATION
  Report Type: Spontaneous
  Country: US (occurrence: US)
  Receive Date: 20250120
  Receipt Date: 20250401
  Transmission Date: 20250717
  Serious: Yes (Other)
  Sender: ABBVIE
  Company Number: US-ABBVIE-6094247

PATIENT
  Age: 45 Year
  Sex: Female
  Weight: 64 kg

DRUGS (2)
  1. BOTOX [Suspect]
     Active Substance: ONABOTULINUMTOXINA
     Indication: Product used for unknown indication
     Route: 065
     Dates: start: 20190731, end: 20190731
  2. DEVICE [Suspect]
     Active Substance: DEVICE
     Indication: Product used for unknown indication
     Route: 065

REACTIONS (10)
  - Blindness [Not Recovered/Not Resolved]
  - Necrosis [Unknown]
  - Dyspnoea [Unknown]
  - Dysphagia [Unknown]
  - Tooth loss [Unknown]
  - Foreign body reaction [Unknown]
  - Surgery [Unknown]
  - Transient ischaemic attack [Unknown]
  - Granuloma [Not Recovered/Not Resolved]
  - Tooth loss [Unknown]

NARRATIVE: CASE EVENT DATE: 20191201
